FAERS Safety Report 7934629-0 (Version None)
Quarter: 2011Q4

REPORT INFORMATION
  Report Type: 
  Country: None (occurrence: None)
  Receive Date: 20111122
  Receipt Date: 20111112
  Transmission Date: 20120403
  Serious: Yes (Hospitalization, Other)
  Sender: FDA-Public Use
  Company Number: US-BAYER-2011-022578

PATIENT
  Age: 17 Year
  Sex: Female
  Weight: 54.422 kg

DRUGS (6)
  1. DURADRIN [Concomitant]
     Indication: MIGRAINE
  2. AZITHROMYCIN [Concomitant]
     Indication: EAR INFECTION
  3. YAZ [Suspect]
     Indication: CONTRACEPTION
     Dosage: UNK
     Dates: start: 20061113, end: 20070116
  4. DURADRIN [Concomitant]
     Indication: HEADACHE
  5. IBUPROFEN [Concomitant]
     Indication: PAIN
  6. AUGMENTIN TRIO [Concomitant]
     Indication: EAR INFECTION

REACTIONS (17)
  - VISION BLURRED [None]
  - NAUSEA [None]
  - BENIGN INTRACRANIAL HYPERTENSION [None]
  - VOMITING [None]
  - SUPERIOR SAGITTAL SINUS THROMBOSIS [None]
  - SCOTOMA [None]
  - FEAR [None]
  - HEADACHE [None]
  - VISUAL IMPAIRMENT [None]
  - EAR PAIN [None]
  - PAPILLOEDEMA [None]
  - DEPRESSION [None]
  - INSOMNIA [None]
  - ANXIETY [None]
  - DEHYDRATION [None]
  - HYPOAESTHESIA [None]
  - INJURY [None]
